FAERS Safety Report 8931333 (Version 3)
Quarter: 2013Q1

REPORT INFORMATION
  Report Type: Spontaneous
  Country: US (occurrence: US)
  Receive Date: 20121128
  Receipt Date: 20130312
  Transmission Date: 20140127
  Serious: No
  Sender: FDA-Public Use
  Company Number: US-PFIZER INC-2012297590

PATIENT
  Age: 49 Year
  Sex: Female
  Weight: 61.22 kg

DRUGS (6)
  1. PRISTIQ [Suspect]
     Indication: DEPRESSION
     Dosage: 100 MG, DAILY
     Route: 048
     Dates: start: 2008
  2. SEROQUEL [Concomitant]
     Indication: DEPRESSION
     Dosage: UNK
     Route: 048
  3. VICODIN [Concomitant]
     Indication: PAIN
     Dosage: UNK, AS NEEDED
     Dates: start: 2007, end: 2012
  4. VICODIN [Concomitant]
     Indication: SPINAL DEFORMITY
  5. VICODIN [Concomitant]
     Indication: LIMB DEFORMITY
  6. VICODIN [Concomitant]
     Indication: SHOULDER DEFORMITY

REACTIONS (2)
  - Emotional disorder [Unknown]
  - Crying [Unknown]
